FAERS Safety Report 5656057-3 (Version None)
Quarter: 2008Q1

REPORT INFORMATION
  Report Type: 
  Country: None (occurrence: None)
  Receive Date: 20080307
  Receipt Date: 20080226
  Transmission Date: 20080703
  Serious: Yes (Other)
  Sender: FDA-Public Use
  Company Number: US-PFIZER INC-2008019222

PATIENT
  Sex: Female
  Weight: 70.3 kg

DRUGS (11)
  1. CHANTIX [Suspect]
     Indication: SMOKING CESSATION THERAPY
     Route: 048
     Dates: start: 20061108, end: 20080127
  2. PROZAC [Concomitant]
  3. NEURONTIN [Concomitant]
  4. METHADONE HCL [Concomitant]
  5. XANAX [Concomitant]
  6. BACLOFEN [Concomitant]
  7. MEPROZINE [Concomitant]
  8. DILAUDID [Concomitant]
  9. DIFLUCAN [Concomitant]
  10. CLOTRIMAZOLE [Concomitant]
  11. ZANAFLEX [Concomitant]

REACTIONS (4)
  - CONVULSION [None]
  - IMPULSIVE BEHAVIOUR [None]
  - MENTAL DISORDER [None]
  - PHYSICAL ASSAULT [None]
